FAERS Safety Report 5238796-1 (Version None)
Quarter: 2007Q1

REPORT INFORMATION
  Report Type: 
  Country: None (occurrence: None)
  Receive Date: 20070215
  Receipt Date: 20070206
  Transmission Date: 20070707
  Serious: Yes (Disabling)
  Sender: FDA-Public Use
  Company Number: SG-PFIZER INC-2004051586

PATIENT
  Sex: Female
  Weight: 65.1 kg

DRUGS (7)
  1. SILDENAFIL CITRATE [Suspect]
     Indication: PULMONARY HYPERTENSION
     Route: 048
  2. SILDENAFIL CITRATE [Suspect]
  3. WARFARIN SODIUM [Concomitant]
     Route: 048
  4. METFORMIN HCL [Concomitant]
     Route: 048
  5. ENALAPRIL MALEATE [Concomitant]
     Route: 048
  6. SIMVASTATIN [Concomitant]
     Route: 048
  7. TROPICAMIDE [Concomitant]
     Route: 047
     Dates: start: 20040716, end: 20040716

REACTIONS (1)
  - CATARACT SUBCAPSULAR [None]
